FAERS Safety Report 20695807 (Version 4)
Quarter: 2022Q3

REPORT INFORMATION
  Report Type: Spontaneous
  Country: US (occurrence: US)
  Receive Date: 20220411
  Receipt Date: 20220812
  Transmission Date: 20221026
  Serious: Yes (Other)
  Sender: FDA-Public Use
  Company Number: US-BIOCODEX2-2022000239

PATIENT

DRUGS (8)
  1. DIACOMIT [Suspect]
     Active Substance: STIRIPENTOL
     Indication: Severe myoclonic epilepsy of infancy
     Dosage: 500 MG, QD
     Route: 065
     Dates: start: 20210924
  2. DIACOMIT [Suspect]
     Active Substance: STIRIPENTOL
     Dosage: 250 MG EVERY MORNING AND 357 MG EVERY EVENING
     Route: 065
  3. DIACOMIT [Suspect]
     Active Substance: STIRIPENTOL
     Dosage: 375 MG BY MOUTH TWICE DAILY
     Route: 048
  4. ONFI [Concomitant]
     Active Substance: CLOBAZAM
     Indication: Severe myoclonic epilepsy of infancy
     Dosage: 2.5 TABLETS, QD
     Route: 048
  5. DIAZEPAM [Concomitant]
     Active Substance: DIAZEPAM
     Indication: Severe myoclonic epilepsy of infancy
     Dosage: 10 MG AS NECESSARY
     Route: 054
  6. FINTEPLA [Concomitant]
     Active Substance: FENFLURAMINE
     Indication: Severe myoclonic epilepsy of infancy
     Dosage: 2.5 ML BID
     Route: 048
  7. KEPPRA [Concomitant]
     Active Substance: LEVETIRACETAM
     Indication: Severe myoclonic epilepsy of infancy
     Dosage: 3 TABS AM, 3.5 PM
     Route: 048
  8. MIDAZOLAM [Concomitant]
     Active Substance: MIDAZOLAM
     Indication: Severe myoclonic epilepsy of infancy
     Dosage: AS NECESSARY 1 ML IN
     Route: 065

REACTIONS (3)
  - Seizure [Recovered/Resolved]
  - Balance disorder [Unknown]
  - Condition aggravated [Unknown]

NARRATIVE: CASE EVENT DATE: 20220413
